FAERS Safety Report 7945748-7 (Version None)
Quarter: 2011Q4

REPORT INFORMATION
  Report Type: 
  Country: None (occurrence: None)
  Receive Date: 20111129
  Receipt Date: 20111121
  Transmission Date: 20120403
  Serious: Yes (Death)
  Sender: FDA-Public Use
  Company Number: IT-CELGENEUS-083-50794-11113047

PATIENT
  Age: 75 Year

DRUGS (1)
  1. VIDAZA [Suspect]
     Route: 065
     Dates: start: 20110901, end: 20111101

REACTIONS (1)
  - DEATH [None]
